FAERS Safety Report 12214861 (Version 1)
Quarter: 2016Q1

REPORT INFORMATION
  Report Type: Spontaneous
  Country: US (occurrence: US)
  Receive Date: 20160328
  Receipt Date: 20160328
  Transmission Date: 20160526
  Serious: No
  Sender: FDA-Public Use
  Company Number: US-BRACCO-012553

PATIENT
  Age: 63 Year
  Sex: Male

DRUGS (2)
  1. GASTROGRAFIN [Suspect]
     Active Substance: DIATRIZOATE MEGLUMINE\DIATRIZOATE SODIUM
     Indication: COMPUTERISED TOMOGRAM
     Dosage: 10 ML OF GASTROGRAFIN DILUTED IN 400 ML NORMAL SALINE- 20 ML GIVEN
     Route: 054
     Dates: start: 20150820, end: 20150820
  2. NORMAL SALINE [Concomitant]
     Active Substance: SODIUM CHLORIDE
     Dosage: 10 ML OF GASTROGRAFIN DILUTED IN 400 ML NORMAL SALINE- 20 ML GIVEN
     Route: 054
     Dates: start: 20150820, end: 20150820

REACTIONS (2)
  - No adverse event [Recovered/Resolved]
  - Expired product administered [Recovered/Resolved]

NARRATIVE: CASE EVENT DATE: 20150820
